FAERS Safety Report 19888856 (Version 2)
Quarter: 2021Q4

REPORT INFORMATION
  Report Type: Spontaneous
  Country: US (occurrence: US)
  Receive Date: 20210928
  Receipt Date: 20211027
  Transmission Date: 20220303
  Serious: No
  Sender: FDA-Public Use
  Company Number: US-AMGEN-USASP2021144376

PATIENT
  Age: 33 Year
  Sex: Female
  Weight: 94.79 kg

DRUGS (8)
  1. REPATHA [Suspect]
     Active Substance: EVOLOCUMAB
     Indication: Blood cholesterol increased
     Dosage: 140 MILLIGRAM, Q2WK
     Route: 065
     Dates: start: 201605, end: 201810
  2. REPATHA [Suspect]
     Active Substance: EVOLOCUMAB
     Dosage: UNK
     Route: 065
     Dates: start: 20201013
  3. CRESTOR [Concomitant]
     Active Substance: ROSUVASTATIN CALCIUM
     Dosage: 40 MILLIGRAM
  4. LEXAPRO [Concomitant]
     Active Substance: ESCITALOPRAM OXALATE
     Dosage: 10 MILLIGRAM
  5. ATIVAN [Concomitant]
     Active Substance: LORAZEPAM
     Dosage: 0.5 MILLIGRAM
  6. COVID-19 VACCINE [Concomitant]
  7. VASCEPA [Concomitant]
     Active Substance: ICOSAPENT ETHYL
  8. ASCORBIC ACID [Concomitant]
     Active Substance: ASCORBIC ACID

REACTIONS (7)
  - Therapeutic product effect decreased [Unknown]
  - Blood cholesterol increased [Unknown]
  - Depression [Unknown]
  - Obesity [Unknown]
  - Feeling abnormal [Unknown]
  - Anxiety [Recovering/Resolving]
  - Influenza [Unknown]

NARRATIVE: CASE EVENT DATE: 20210901
